FAERS Safety Report 6888294-4 (Version None)
Quarter: 2010Q3

REPORT INFORMATION
  Report Type: 
  Country: None (occurrence: None)
  Receive Date: 20100730
  Receipt Date: 20100721
  Transmission Date: 20110219
  Serious: Yes (Life-Threatening, Hospitalization)
  Sender: FDA-Public Use
  Company Number: PL-BRISTOL-MYERS SQUIBB COMPANY-15202096

PATIENT
  Age: 44 Year
  Sex: Male

DRUGS (2)
  1. ARIPIPRAZOLE [Suspect]
     Indication: SCHIZOPHRENIA
     Dosage: RECENTLY  TAKEN ON 13JUL10.
     Dates: start: 20100629
  2. LORAZEPAM [Concomitant]
     Dates: start: 20100711, end: 20100712

REACTIONS (1)
  - PSYCHOTIC DISORDER [None]
